FAERS Safety Report 10214725 (Version 2)
Quarter: 2014Q2

REPORT INFORMATION
  Report Type: Spontaneous
  Country: US (occurrence: US)
  Receive Date: 20140603
  Receipt Date: 20140603
  Transmission Date: 20141212
  Serious: No
  Sender: FDA-Public Use
  Company Number: US-ENDO PHARMACEUTICALS INC.-SPLN20140014

PATIENT
  Sex: Male

DRUGS (2)
  1. SUPPRELIN LA [Suspect]
     Indication: PRODUCT USED FOR UNKNOWN INDICATION
     Route: 058
     Dates: start: 2012
  2. SUPPRELIN LA [Suspect]
     Route: 058
     Dates: start: 201312

REACTIONS (2)
  - Incorrect drug administration duration [Not Recovered/Not Resolved]
  - Procedural complication [Not Recovered/Not Resolved]
